FAERS Safety Report 4541070-X (Version None)
Quarter: 2004Q4

REPORT INFORMATION
  Report Type: 
  Country: None (occurrence: None)
  Receive Date: 20041229
  Receipt Date: 20041220
  Transmission Date: 20050328
  Serious: Yes (Death, Hospitalization)
  Sender: FDA-Public Use
  Company Number: JP-JNJFOC-20040603705

PATIENT
  Sex: Male

DRUGS (8)
  1. DUROTEP [Suspect]
     Indication: CANCER PAIN
     Route: 062
  2. FLUNITRAZEPAM [Concomitant]
  3. TIAPRIDE HYDROCHLORIDE [Concomitant]
     Route: 049
  4. FUROSEMIDE [Concomitant]
     Route: 042
  5. MORPHINE HYDROCHLORIDE [Concomitant]
     Indication: CANCER PAIN
     Route: 049
  6. DICLOFENAC SODIUM [Concomitant]
     Route: 054
  7. DICLOFENAC SODIUM [Concomitant]
     Indication: CANCER PAIN
     Route: 054
  8. HYDROCORTISONE SODIUM SUCCINATE [Concomitant]

REACTIONS (7)
  - BLOOD UREA INCREASED [None]
  - CEREBRAL INFARCTION [None]
  - HEPATIC FAILURE [None]
  - METASTASIS [None]
  - RESTLESSNESS [None]
  - SOMNOLENCE [None]
  - WHITE BLOOD CELL COUNT INCREASED [None]
